FAERS Safety Report 4700025-2 (Version None)
Quarter: 2005Q2

REPORT INFORMATION
  Report Type: 
  Country: None (occurrence: None)
  Receive Date: 20050623
  Receipt Date: 20050323
  Transmission Date: 20051028
  Serious: Yes (Hospitalization, Other)
  Sender: FDA-Public Use
  Company Number: US-JNJFOC-20050306925

PATIENT
  Age: 15 Year
  Sex: Male
  Weight: 99.7913 kg

DRUGS (5)
  1. HALDOL [Suspect]
     Indication: AGGRESSION
     Dosage: 60 MG, 1 IN 1 DAY, ORAL
     Route: 048
     Dates: end: 20050131
  2. HALDOL [Suspect]
     Indication: DISTURBANCE IN SOCIAL BEHAVIOUR
     Dosage: 60 MG, 1 IN 1 DAY, ORAL
     Route: 048
     Dates: end: 20050131
  3. CLOZAPINE [Suspect]
     Indication: BIPOLAR DISORDER
     Dosage: 200 MG, 1 IN 1 DAY
     Dates: start: 20050101, end: 20050201
  4. ZYPREXA [Suspect]
     Indication: AGGRESSION
     Dosage: PRN EVERY 6 HOURS
  5. ZYPREXA [Suspect]
     Indication: DISTURBANCE IN SOCIAL BEHAVIOUR
     Dosage: PRN EVERY 6 HOURS

REACTIONS (1)
  - NEUROLEPTIC MALIGNANT SYNDROME [None]
